FAERS Safety Report 24272713 (Version 1)
Quarter: 2024Q3

REPORT INFORMATION
  Report Type: Other
  Country: CA (occurrence: CA)
  Receive Date: 20240902
  Receipt Date: 20240902
  Transmission Date: 20241016
  Serious: Yes (Other)
  Sender: APOTEX
  Company Number: CA-APOTEX-2024AP007466

PATIENT
  Age: 34 Year
  Sex: Female

DRUGS (3)
  1. QUETIAPINE FUMARATE [Suspect]
     Active Substance: QUETIAPINE FUMARATE
     Indication: Insomnia
     Dosage: UNK
     Route: 048
  2. ZOLPIDEM [Suspect]
     Active Substance: ZOLPIDEM TARTRATE
     Indication: Product used for unknown indication
     Dosage: UNK
     Route: 065
  3. ABRILADA [Suspect]
     Active Substance: ADALIMUMAB-AFZB
     Indication: Crohn^s disease
     Dosage: 40 MILLIGRAM, Q.O.WK.
     Route: 058

REACTIONS (9)
  - Abdominal pain [Unknown]
  - Insomnia [Unknown]
  - Mental disorder [Unknown]
  - Nausea [Unknown]
  - Off label use [Unknown]
  - Perinatal depression [Unknown]
  - Product use issue [Unknown]
  - Constipation [Unknown]
  - Drug ineffective [Unknown]
